FAERS Safety Report 5764980-4 (Version None)
Quarter: 2008Q2

REPORT INFORMATION
  Report Type: 
  Country: None (occurrence: None)
  Receive Date: 20080602
  Receipt Date: 20070511
  Transmission Date: 20081010
  Serious: Yes (Hospitalization, Other)
  Sender: FDA-Public Use
  Company Number: WAES 0703USA03699

PATIENT
  Age: 43 Year
  Sex: Male
  Weight: 87.9978 kg

DRUGS (12)
  1. EMEND [Suspect]
     Indication: PROPHYLAXIS OF NAUSEA AND VOMITING
     Dosage: 125 MG/DAILY/PO ; 125 MG/DAILY/PO
     Route: 048
     Dates: start: 20070212, end: 20070212
  2. EMEND [Suspect]
     Indication: PROPHYLAXIS OF NAUSEA AND VOMITING
     Dosage: 125 MG/DAILY/PO ; 125 MG/DAILY/PO
     Route: 048
     Dates: start: 20070308, end: 20070308
  3. EMEND [Suspect]
     Indication: PROPHYLAXIS OF NAUSEA AND VOMITING
     Dosage: 80 MG/DAILY/PO ; 80 MG/DAILY/PO
     Route: 048
     Dates: start: 20070213, end: 20070214
  4. EMEND [Suspect]
     Indication: PROPHYLAXIS OF NAUSEA AND VOMITING
     Dosage: 80 MG/DAILY/PO ; 80 MG/DAILY/PO
     Route: 048
     Dates: start: 20070309, end: 20070310
  5. ETOPOSIDE [Suspect]
     Indication: TESTIS CANCER
     Dosage: 200 MG/DAILY/IV
     Route: 042
     Dates: start: 20070212, end: 20070216
  6. CISPLATIN [Suspect]
     Indication: TESTIS CANCER
     Dosage: 40 MG/DAILY/IV
     Route: 042
     Dates: start: 20070212, end: 20070216
  7. DECADRON [Concomitant]
  8. ASCORBIC ACID [Concomitant]
  9. GARLIC [Concomitant]
  10. ONDANSETRON [Concomitant]
  11. VITAMIN E [Concomitant]
  12. VITAMINS (UNSPECIFIED) [Concomitant]

REACTIONS (1)
  - NEUTROPENIA [None]
